FAERS Safety Report 24377878 (Version 1)
Quarter: 2024Q3

REPORT INFORMATION
  Report Type: Spontaneous
  Country: US (occurrence: US)
  Receive Date: 20240930
  Receipt Date: 20240930
  Transmission Date: 20241016
  Serious: No
  Sender: MERCK
  Company Number: US-009507513-2409USA002663

PATIENT
  Sex: Male

DRUGS (3)
  1. JANUVIA [Suspect]
     Active Substance: SITAGLIPTIN PHOSPHATE
     Dosage: UNK
     Route: 048
  2. VYNDAMAX [Suspect]
     Active Substance: TAFAMIDIS
     Indication: Hereditary ATTR amyloid cardiomyopathy
     Dosage: 61 MILLIGRAM, ONCE DAILY (QD)
     Route: 048
     Dates: start: 202311
  3. METFORMIN [Suspect]
     Active Substance: METFORMIN HYDROCHLORIDE

REACTIONS (1)
  - Constipation [Recovered/Resolved]
